FAERS Safety Report 9639493 (Version 1)
Quarter: 2013Q4

REPORT INFORMATION
  Report Type: Report from Study
  Country: GR (occurrence: GR)
  Receive Date: 20131023
  Receipt Date: 20131023
  Transmission Date: 20140711
  Serious: Yes (Death)
  Sender: FDA-Public Use
  Company Number: GR-ROCHE-1292560

PATIENT
  Sex: Female

DRUGS (5)
  1. BEVACIZUMAB [Suspect]
     Indication: BREAST CANCER METASTATIC
     Dosage: OVER 60 MIN, ON DAY 1
     Route: 042
  2. EPIRUBICIN [Suspect]
     Indication: BREAST CANCER METASTATIC
     Dosage: OVER 10 MIN, ON DAY 1
     Route: 042
  3. DOCETAXEL [Suspect]
     Indication: BREAST CANCER METASTATIC
     Dosage: OVER 60 MIN, DAY 1
     Route: 042
  4. LENOGRASTIM [Concomitant]
     Dosage: ON DAY 3-10
     Route: 065
  5. PEGFILGRASTIM [Concomitant]
     Dosage: ONCE ON DAY 3.
     Route: 065

REACTIONS (1)
  - Sudden death [Fatal]
